FAERS Safety Report 8741303 (Version 4)
Quarter: 2018Q1

REPORT INFORMATION
  Report Type: Spontaneous
  Country: US (occurrence: US)
  Receive Date: 20120824
  Receipt Date: 20180103
  Transmission Date: 20180509
  Serious: Yes (Other)
  Sender: FDA-Public Use
  Company Number: US-ASTRAZENECA-2012SE11964

PATIENT
  Age: 69 Year
  Sex: Female
  Weight: 85.3 kg

DRUGS (3)
  1. SYMBICORT [Suspect]
     Active Substance: BUDESONIDE\FORMOTEROL FUMARATE DIHYDRATE
     Indication: ASTHMA
     Dosage: 160/4.5MCG ON TWO TIMES A DAY
     Route: 055
     Dates: start: 2006
  2. PREDNISONE. [Concomitant]
     Active Substance: PREDNISONE
  3. SYMBICORT [Suspect]
     Active Substance: BUDESONIDE\FORMOTEROL FUMARATE DIHYDRATE
     Indication: CHRONIC OBSTRUCTIVE PULMONARY DISEASE
     Dosage: 160/4.5MCG ON TWO TIMES A DAY
     Route: 055
     Dates: start: 2006

REACTIONS (20)
  - Nasopharyngitis [Unknown]
  - Intentional product misuse [Unknown]
  - Malaise [Unknown]
  - Respiratory disorder [Unknown]
  - Emotional disorder [Unknown]
  - Dysphonia [Unknown]
  - Adverse event [Unknown]
  - Oropharyngeal pain [Unknown]
  - Drug dose omission [Unknown]
  - Dyspnoea [Unknown]
  - Cough [Unknown]
  - Chest pain [Unknown]
  - Expired product administered [Unknown]
  - Myocardial infarction [Unknown]
  - Weight increased [Unknown]
  - Feeling abnormal [Unknown]
  - Fall [Unknown]
  - Body height increased [Unknown]
  - Sinusitis [Unknown]
  - Ear infection [Unknown]

NARRATIVE: CASE EVENT DATE: 2016
